FAERS Safety Report 9468583 (Version 1)
Quarter: 2013Q3

REPORT INFORMATION
  Report Type: Spontaneous
  Country: US (occurrence: US)
  Receive Date: 20130821
  Receipt Date: 20130821
  Transmission Date: 20140515
  Serious: No
  Sender: FDA-Public Use
  Company Number: US-BAYER-2013-100582

PATIENT
  Sex: Male

DRUGS (1)
  1. ALEVE CAPLET [Suspect]
     Indication: GINGIVAL PAIN

REACTIONS (5)
  - Palpitations [None]
  - Malaise [None]
  - Nausea [None]
  - Insomnia [None]
  - Headache [None]
